FAERS Safety Report 5123390-3 (Version None)
Quarter: 2006Q4

REPORT INFORMATION
  Report Type: 
  Country: None (occurrence: None)
  Receive Date: 20061005
  Receipt Date: 20060922
  Transmission Date: 20070319
  Serious: Yes (Hospitalization)
  Sender: FDA-Public Use
  Company Number: 2006-08-0227

PATIENT
  Age: 68 Year
  Sex: Male
  Weight: 102 kg

DRUGS (10)
  1. EPTIFIBATIDE (S-P) (EPTIFIBATIDE) [Suspect]
     Indication: ACUTE CORONARY SYNDROME
     Dosage: IV
     Route: 042
     Dates: start: 20060712, end: 20060714
  2. ACETYLSALICYLIC ACID (CON.) [Concomitant]
  3. CLOPIDOGREL (CON.) [Concomitant]
  4. METOPROLOL (CON.) [Concomitant]
  5. RAMIPRIL (CON.) [Concomitant]
  6. TORASEMIDE (CON.) [Concomitant]
  7. ATORVASTATIN CALCIUM (CON.) [Concomitant]
  8. HYDROCHLOROTHIAZIDE (CON.) [Concomitant]
  9. CANDESARTAN CILEXETIL (CON.) [Concomitant]
  10. ESOMEPRAZOLE (CON.) [Concomitant]

REACTIONS (5)
  - CATHETER SITE INFECTION [None]
  - FAT EMBOLISM [None]
  - HAEMODIALYSIS [None]
  - RENAL FAILURE ACUTE [None]
  - STAPHYLOCOCCAL INFECTION [None]
